FAERS Safety Report 16123973 (Version 5)
Quarter: 2020Q1

REPORT INFORMATION
  Report Type: Report from Study
  Country: FR (occurrence: FR)
  Receive Date: 20190327
  Receipt Date: 20200305
  Transmission Date: 20200409
  Serious: Yes (Other)
  Sender: FDA-Public Use
  Company Number: FR-009507513-1902FRA006320

PATIENT
  Age: 23 Year
  Sex: Male
  Weight: 57 kg

DRUGS (1)
  1. LETERMOVIR [Suspect]
     Active Substance: LETERMOVIR
     Dosage: 240 MILLIGRAM, QD
     Route: 048
     Dates: start: 20180927, end: 20181228

REACTIONS (3)
  - Cytomegalovirus infection [Recovered/Resolved]
  - Pathogen resistance [Unknown]
  - Treatment failure [Unknown]

NARRATIVE: CASE EVENT DATE: 20181227
